FAERS Safety Report 9393194 (Version 1)
Quarter: 2013Q3

REPORT INFORMATION
  Report Type: Spontaneous
  Country: US (occurrence: US)
  Receive Date: 20130710
  Receipt Date: 20130710
  Transmission Date: 20140515
  Serious: No
  Sender: FDA-Public Use
  Company Number: US-TEVA-415129USA

PATIENT
  Sex: Female
  Weight: 63.11 kg

DRUGS (6)
  1. NUVIGIL [Suspect]
     Indication: SOMNOLENCE
  2. NUVIGIL [Suspect]
  3. ZOLOFT [Concomitant]
     Indication: FEELING OF RELAXATION
     Dosage: DAILY
  4. PROVIGIL [Concomitant]
     Dosage: TWICE DAILY
     Dates: start: 2000
  5. LEVOTHYROXINE [Concomitant]
     Indication: HYPOTHYROIDISM
     Dosage: DAILY
  6. VITAMINS [Concomitant]
     Indication: VITAMIN SUPPLEMENTATION

REACTIONS (3)
  - Incorrect dose administered [Unknown]
  - Incorrect dose administered [Unknown]
  - Off label use [Unknown]
